FAERS Safety Report 15654519 (Version 3)
Quarter: 2019Q1

REPORT INFORMATION
  Report Type: Spontaneous
  Country: JP (occurrence: JP)
  Receive Date: 20181126
  Receipt Date: 20190124
  Transmission Date: 20190417
  Serious: Yes (Hospitalization)
  Sender: FDA-Public Use
  Company Number: JP-ROCHE-2217438

PATIENT
  Age: 39 Year
  Sex: Male

DRUGS (4)
  1. REMICADE [Suspect]
     Active Substance: INFLIXIMAB
     Dosage: (5 MG/KG,1 IN 1 D)
     Route: 041
     Dates: start: 20180608, end: 20180608
  2. VALIXA [Suspect]
     Active Substance: VALGANCICLOVIR
     Indication: CYTOMEGALOVIRUS HEPATITIS
     Route: 048
     Dates: start: 20181107
  3. PREDONINE [Concomitant]
     Active Substance: PREDNISOLONE
  4. REMICADE [Suspect]
     Active Substance: INFLIXIMAB
     Indication: COLITIS ULCERATIVE
     Dosage: (5 MG/KG,1 IN 1 D)
     Route: 041
     Dates: start: 20180427

REACTIONS (3)
  - Hepatitis [Recovered/Resolved]
  - Cytomegalovirus infection [Unknown]
  - Therapy non-responder [Unknown]
